FAERS Safety Report 5565181-5 (Version None)
Quarter: 2007Q4

REPORT INFORMATION
  Report Type: 
  Country: None (occurrence: None)
  Receive Date: 20071218
  Receipt Date: 20071208
  Transmission Date: 20080405
  Serious: Yes (Death, Hospitalization, Other)
  Sender: FDA-Public Use
  Company Number: FR-ABBOTT-07P-062-0425937-00

PATIENT
  Sex: Female

DRUGS (5)
  1. FENOFIBRATE [Suspect]
     Indication: DRUG USE FOR UNKNOWN INDICATION
     Route: 048
     Dates: start: 19870101, end: 20070930
  2. DIOVAN HCT [Suspect]
     Indication: HYPERTENSION
     Route: 048
     Dates: end: 20070930
  3. NEBIVOLOL HCL [Suspect]
     Indication: DRUG USE FOR UNKNOWN INDICATION
     Route: 048
     Dates: end: 20070930
  4. VINBURNINE [Suspect]
     Indication: DRUG USE FOR UNKNOWN INDICATION
     Route: 048
     Dates: end: 20070930
  5. ALPRAZOLAM [Suspect]
     Indication: DRUG USE FOR UNKNOWN INDICATION
     Route: 048
     Dates: end: 20070930

REACTIONS (17)
  - ASCITES [None]
  - ATRIAL FIBRILLATION [None]
  - BLOOD BILIRUBIN INCREASED [None]
  - CHROMATURIA [None]
  - COMA HEPATIC [None]
  - CYTOMEGALOVIRUS TEST POSITIVE [None]
  - DYSPEPSIA [None]
  - ENCEPHALOPATHY [None]
  - FAECES PALE [None]
  - HEPATIC FAILURE [None]
  - HEPATITIS [None]
  - JAUNDICE [None]
  - LIVER DISORDER [None]
  - MULTI-ORGAN FAILURE [None]
  - NEPHRITIS [None]
  - RENAL FAILURE ACUTE [None]
  - WEIGHT DECREASED [None]
